FAERS Safety Report 4602996-1 (Version None)
Quarter: 2005Q1

REPORT INFORMATION
  Report Type: 
  Country: None (occurrence: None)
  Receive Date: 20050309
  Receipt Date: 20040419
  Transmission Date: 20050727
  Serious: Yes (Hospitalization)
  Sender: FDA-Public Use
  Company Number: DE-ROCHE-364756

PATIENT
  Age: 54 Year
  Sex: Male

DRUGS (16)
  1. DACLIZUMAB [Suspect]
     Route: 042
     Dates: start: 20040114, end: 20040114
  2. DACLIZUMAB [Suspect]
     Route: 042
     Dates: end: 20040309
  3. MYCOPHENOLATE MOFETIL [Suspect]
     Route: 048
     Dates: start: 20040114
  4. TACROLIMUS [Suspect]
     Route: 048
     Dates: start: 20040114
  5. DECORTIN [Suspect]
     Route: 048
     Dates: start: 20040114
  6. PANTOPRAZOLE SODIUM [Concomitant]
     Route: 048
     Dates: start: 20040114
  7. CONCOR [Concomitant]
     Route: 048
     Dates: start: 20040114
  8. ZINAT [Concomitant]
     Route: 048
     Dates: start: 20040114
  9. DELIX [Concomitant]
     Route: 048
     Dates: start: 20040114
  10. NATRON [Concomitant]
     Route: 048
     Dates: start: 20040114
  11. ZYLORIC 100 [Concomitant]
     Route: 048
     Dates: start: 20040114
  12. REDUCTO-SPEZIAL [Concomitant]
     Route: 048
     Dates: start: 20040114
  13. CYNT [Concomitant]
     Route: 048
     Dates: start: 20040114
  14. ACTRAPID [Concomitant]
     Dosage: DOSE AND FREQUENCY: ACCORDING TO BLOOD GLUCOSE.
  15. DILZEM [Concomitant]
     Route: 048
     Dates: start: 20040114
  16. CALCIMAGON-D3 [Concomitant]
     Route: 048
     Dates: start: 20040114

REACTIONS (1)
  - CYTOMEGALOVIRUS INFECTION [None]
